FAERS Safety Report 8214487-X (Version None)
Quarter: 2012Q1

REPORT INFORMATION
  Report Type: 
  Country: None (occurrence: None)
  Receive Date: 20120316
  Receipt Date: 20120316
  Transmission Date: 20120608
  Serious: Yes (Other)
  Sender: FDA-Public Use
  Company Number: None

PATIENT
  Age: 48 Year
  Sex: Male
  Weight: 74.842 kg

DRUGS (3)
  1. CITALOPRAM HYDROBROMIDE [Concomitant]
     Route: 048
  2. ABILIFY [Suspect]
     Indication: ADJUVANT THERAPY
     Dosage: ONE 2MG TABLET
     Route: 048
     Dates: start: 20120310, end: 20120310
  3. ABILIFY [Suspect]
     Indication: DEPRESSION
     Dosage: ONE 2MG TABLET
     Route: 048
     Dates: start: 20120310, end: 20120310

REACTIONS (6)
  - HYPERHIDROSIS [None]
  - HEART RATE INCREASED [None]
  - DIZZINESS [None]
  - DYSPNOEA [None]
  - LOSS OF CONSCIOUSNESS [None]
  - HYPOTENSION [None]
